FAERS Safety Report 23309877 (Version 1)
Quarter: 2023Q4

REPORT INFORMATION
  Report Type: Report from Study
  Country: US (occurrence: US)
  Receive Date: 20231218
  Receipt Date: 20231218
  Transmission Date: 20240109
  Serious: Yes (Hospitalization)
  Sender: FDA-Public Use
  Company Number: US-TAKEDA-2023TUS120891

PATIENT
  Age: 79 Year
  Sex: Female
  Weight: 117 kg

DRUGS (8)
  1. TEDUGLUTIDE [Suspect]
     Active Substance: TEDUGLUTIDE
     Indication: Short-bowel syndrome
     Dosage: 6 MILLIGRAM, QD
     Route: 042
     Dates: start: 20170401
  2. TEDUGLUTIDE [Suspect]
     Active Substance: TEDUGLUTIDE
     Indication: Short-bowel syndrome
     Dosage: 6 MILLIGRAM, QD
     Route: 042
     Dates: start: 20170401
  3. TEDUGLUTIDE [Suspect]
     Active Substance: TEDUGLUTIDE
     Indication: Short-bowel syndrome
     Dosage: 6 MILLIGRAM, QD
     Route: 042
     Dates: start: 20170401
  4. TEDUGLUTIDE [Suspect]
     Active Substance: TEDUGLUTIDE
     Indication: Short-bowel syndrome
     Dosage: 6 MILLIGRAM, QD
     Route: 042
     Dates: start: 20170401
  5. POTASSIUM CHLORIDE [Concomitant]
     Active Substance: POTASSIUM CHLORIDE
     Dosage: 40 MILLIEQUIVALENT, QD
     Route: 048
     Dates: start: 20220527
  6. LASIX [Concomitant]
     Active Substance: FUROSEMIDE
     Indication: Oedema peripheral
     Dosage: 80 MILLIGRAM, QD
     Route: 048
     Dates: start: 20220527
  7. VITAMIN D [Concomitant]
     Active Substance: VITAMIN D NOS
     Indication: Supplementation therapy
     Dosage: 50000 INTERNATIONAL UNIT, QD
     Route: 048
     Dates: start: 20180302
  8. IRON [Concomitant]
     Active Substance: IRON
     Indication: Supplementation therapy
     Dosage: 65 MILLIGRAM, QD
     Route: 048
     Dates: start: 20171009

REACTIONS (1)
  - Cellulitis [Recovered/Resolved]

NARRATIVE: CASE EVENT DATE: 20230703
